FAERS Safety Report 14941603 (Version 4)
Quarter: 2018Q3

REPORT INFORMATION
  Report Type: Report from Study
  Country: US (occurrence: US)
  Receive Date: 20180526
  Receipt Date: 20180831
  Transmission Date: 20181010
  Serious: Yes (Hospitalization, Other)
  Sender: FDA-Public Use
  Company Number: PHEH2018US019437

PATIENT
  Age: 61 Year
  Sex: Male
  Weight: 89 kg

DRUGS (9)
  1. MMF [Concomitant]
     Active Substance: MYCOPHENOLATE MOFETIL
     Indication: PRODUCT USED FOR UNKNOWN INDICATION
     Dosage: UNK
     Route: 065
  2. ZORTRESS [Suspect]
     Active Substance: EVEROLIMUS
     Dosage: UNK
  3. ZORTRESS [Suspect]
     Active Substance: EVEROLIMUS
     Dosage: UNK
  4. ZORTRESS [Suspect]
     Active Substance: EVEROLIMUS
     Dosage: UNK
  5. TACROLIMUS. [Concomitant]
     Active Substance: TACROLIMUS
     Indication: PRODUCT USED FOR UNKNOWN INDICATION
     Dosage: UNK
     Route: 065
  6. ZORTRESS [Suspect]
     Active Substance: EVEROLIMUS
     Dosage: UNK
  7. ZORTRESS [Suspect]
     Active Substance: EVEROLIMUS
     Indication: LIVER TRANSPLANT
     Dosage: 3 MG, BID
     Route: 048
     Dates: start: 20171205
  8. ZORTRESS [Suspect]
     Active Substance: EVEROLIMUS
     Dosage: 2 MG, BID
     Route: 048
     Dates: end: 20180602
  9. ZORTRESS [Suspect]
     Active Substance: EVEROLIMUS
     Dosage: UNK

REACTIONS (17)
  - Mouth ulceration [Recovered/Resolved]
  - Dehydration [Unknown]
  - Dyspnoea exertional [Recovered/Resolved]
  - Decreased appetite [Recovering/Resolving]
  - Pleural fibrosis [Unknown]
  - Immunosuppressant drug level increased [Not Recovered/Not Resolved]
  - Renal injury [Unknown]
  - Kidney infection [Unknown]
  - Mouth ulceration [Recovered/Resolved]
  - Dyslipidaemia [Not Recovered/Not Resolved]
  - Productive cough [Recovered/Resolved]
  - Dyspnoea [Not Recovered/Not Resolved]
  - Bronchitis [Unknown]
  - Pruritus [Recovered/Resolved]
  - Asthenia [Recovering/Resolving]
  - Viral infection [Unknown]
  - Pruritus [Recovered/Resolved]

NARRATIVE: CASE EVENT DATE: 20171205
